FAERS Safety Report 10345382 (Version 2)
Quarter: 2014Q3

REPORT INFORMATION
  Report Type: Report from Study
  Country: FR (occurrence: FR)
  Receive Date: 20140728
  Receipt Date: 20140820
  Transmission Date: 20150326
  Serious: Yes (Hospitalization)
  Sender: FDA-Public Use
  Company Number: PHHO2014FR010287

PATIENT

DRUGS (2)
  1. SORAFENIB [Concomitant]
     Active Substance: SORAFENIB
     Indication: LUNG NEOPLASM MALIGNANT
     Dosage: 200 MG, BID
     Route: 048
     Dates: start: 20140520, end: 20140721
  2. AFINITOR [Suspect]
     Active Substance: EVEROLIMUS
     Indication: LUNG NEOPLASM MALIGNANT
     Dosage: 5 MG, UNK
     Route: 048
     Dates: start: 20140527, end: 20140714

REACTIONS (1)
  - Cholestasis [Not Recovered/Not Resolved]

NARRATIVE: CASE EVENT DATE: 20140722
